FAERS Safety Report 25445649 (Version 3)
Quarter: 2025Q3

REPORT INFORMATION
  Report Type: Spontaneous
  Country: EU (occurrence: EU)
  Receive Date: 20250617
  Receipt Date: 20250709
  Transmission Date: 20251021
  Serious: Yes (Other)
  Sender: SANOFI AVENTIS
  Company Number: EU-SA-2025SA171253

PATIENT
  Age: 76 Year

DRUGS (6)
  1. DUPIXENT [Suspect]
     Active Substance: DUPILUMAB
     Dosage: 1 INJECTION / 2 WEEKS
     Route: 058
     Dates: start: 20240704, end: 202505
  2. PRALUENT [Suspect]
     Active Substance: ALIROCUMAB
     Indication: Drug intolerance
     Dosage: 75 MG, QOW
     Route: 058
     Dates: start: 20240717, end: 202505
  3. AMLODIPINE BESYLATE\OLMESARTAN MEDOXOMIL [Concomitant]
     Active Substance: AMLODIPINE BESYLATE\OLMESARTAN MEDOXOMIL
  4. EUTHYROX [Concomitant]
     Active Substance: LEVOTHYROXINE SODIUM
  5. XALCOM [Concomitant]
     Active Substance: LATANOPROST\TIMOLOL
  6. ALFUZOSIN [Concomitant]
     Active Substance: ALFUZOSIN

REACTIONS (1)
  - Pancytopenia [Unknown]

NARRATIVE: CASE EVENT DATE: 20250101
